FAERS Safety Report 8110704 (Version 7)
Quarter: 2014Q3

REPORT INFORMATION
  Report Type: Spontaneous
  Country: JP (occurrence: JP)
  Receive Date: 20110829
  Receipt Date: 20140926
  Transmission Date: 20150326
  Serious: Yes (Hospitalization, Other)
  Sender: FDA-Public Use
  Company Number: PHHY2011JP74917

PATIENT
  Age: 71 Year
  Sex: Female

DRUGS (2)
  1. AREDIA [Suspect]
     Active Substance: PAMIDRONATE DISODIUM
     Indication: METASTASES TO BONE
     Route: 041
  2. ZOMETA [Suspect]
     Active Substance: ZOLEDRONIC ACID
     Indication: METASTASES TO BONE
     Dosage: 4 MG, PER ADMINISTRATION
     Route: 041

REACTIONS (5)
  - Tooth socket haemorrhage [Unknown]
  - Fall [Unknown]
  - Osteonecrosis of jaw [Recovered/Resolved]
  - Atypical femur fracture [Recovered/Resolved]
  - Exposed bone in jaw [Unknown]
